FAERS Safety Report 19862631 (Version 1)
Quarter: 2021Q3

REPORT INFORMATION
  Report Type: Spontaneous
  Country: DE (occurrence: DE)
  Receive Date: 20210921
  Receipt Date: 20210921
  Transmission Date: 20211014
  Serious: Yes (Death, Hospitalization, Other)
  Sender: FDA-Public Use
  Company Number: DE-MYLANLABS-2021M1063616

PATIENT
  Age: 50 Year
  Sex: Male

DRUGS (4)
  1. TACROLIMUS. [Suspect]
     Active Substance: TACROLIMUS
     Indication: IMMUNOSUPPRESSANT DRUG THERAPY
     Dosage: 1 MILLIGRAM (1 MG)
  2. MYCOPHENOLATE MOFETIL. [Suspect]
     Active Substance: MYCOPHENOLATE MOFETIL
     Indication: IMMUNOSUPPRESSANT DRUG THERAPY
     Dosage: 1750 MILLIGRAM (1750 MG)
  3. METHYLPREDNISOLONE. [Suspect]
     Active Substance: METHYLPREDNISOLONE
     Indication: IMMUNOSUPPRESSANT DRUG THERAPY
     Dosage: 8 MILLIGRAM (8 MG MONOTHERAPY)
  4. METHYLPREDNISOLONE. [Suspect]
     Active Substance: METHYLPREDNISOLONE
     Dosage: 2 MILLIGRAM, QD (2 MG, QD)

REACTIONS (11)
  - Ear haemorrhage [Fatal]
  - Basal cell carcinoma [Fatal]
  - General physical health deterioration [Fatal]
  - Confusional state [Fatal]
  - Squamous cell carcinoma [Fatal]
  - Pneumocephalus [Fatal]
  - Shock haemorrhagic [Fatal]
  - Haemorrhage [Fatal]
  - Headache [Fatal]
  - Dyspepsia [Fatal]
  - Metastases to bone [Fatal]

NARRATIVE: CASE EVENT DATE: 201704
